FAERS Safety Report 18257244 (Version 2)
Quarter: 2020Q3

REPORT INFORMATION
  Report Type: Spontaneous
  Country: US (occurrence: US)
  Receive Date: 20200911
  Receipt Date: 20200925
  Transmission Date: 20201103
  Serious: Yes (Hospitalization, Other)
  Sender: FDA-Public Use
  Company Number: US-GLAXOSMITHKLINE-US2020178769

PATIENT
  Age: 26 Year
  Sex: Female

DRUGS (4)
  1. BENLYSTA [Suspect]
     Active Substance: BELIMUMAB
     Dosage: UNK
     Dates: start: 202004
  2. BENLYSTA [Suspect]
     Active Substance: BELIMUMAB
     Indication: SYSTEMIC LUPUS ERYTHEMATOSUS
     Dosage: 200 MG/ML, WE
  3. BENLYSTA [Suspect]
     Active Substance: BELIMUMAB
     Indication: SYSTEMIC LUPUS ERYTHEMATOSUS
     Dosage: 200 MG/ML, WE
     Dates: start: 20200210
  4. LYRICA [Suspect]
     Active Substance: PREGABALIN
     Indication: NEURALGIA
     Dosage: UNK

REACTIONS (19)
  - Lethargy [Recovered/Resolved]
  - Weight increased [Unknown]
  - Condition aggravated [Unknown]
  - Drug ineffective [Unknown]
  - Pancreatitis necrotising [Recovered/Resolved]
  - Oesophageal rupture [Unknown]
  - Herpes zoster [Not Recovered/Not Resolved]
  - Muscle twitching [Recovered/Resolved]
  - Vomiting [Unknown]
  - Neuralgia [Unknown]
  - Fatigue [Recovered/Resolved]
  - Product storage error [Unknown]
  - Migraine [Unknown]
  - Headache [Recovered/Resolved]
  - Product dose omission issue [Unknown]
  - Gastrointestinal haemorrhage [Unknown]
  - Myalgia [Recovered/Resolved]
  - Muscle tightness [Recovered/Resolved]
  - Insomnia [Recovered/Resolved]

NARRATIVE: CASE EVENT DATE: 20000210
